FAERS Safety Report 8271808-X (Version None)
Quarter: 2012Q2

REPORT INFORMATION
  Report Type: 
  Country: None (occurrence: None)
  Receive Date: 20120410
  Receipt Date: 20110329
  Transmission Date: 20120825
  Serious: No
  Sender: FDA-Public Use
  Company Number: US-BAUSCH-2011BL002150

PATIENT
  Age: 53 Year
  Sex: Male

DRUGS (2)
  1. POLYMYXIN B SULFATES AND TRIMETHOPRIM SULFATE [Suspect]
     Indication: VIRAL INFECTION
     Route: 047
     Dates: start: 20110324, end: 20110327
  2. POLYMYXIN B SULFATES AND TRIMETHOPRIM SULFATE [Suspect]
     Indication: OFF LABEL USE
     Route: 047
     Dates: start: 20110324, end: 20110327

REACTIONS (5)
  - CONJUNCTIVITIS INFECTIVE [None]
  - CONDITION AGGRAVATED [None]
  - ERYTHEMA OF EYELID [None]
  - OCULAR HYPERAEMIA [None]
  - EYELID OEDEMA [None]
